FAERS Safety Report 10335042 (Version 1)
Quarter: 2014Q3

REPORT INFORMATION
  Report Type: Spontaneous
  Country: US (occurrence: US)
  Receive Date: 20140723
  Receipt Date: 20140723
  Transmission Date: 20150326
  Serious: Yes (Other)
  Sender: FDA-Public Use
  Company Number: CHPA2014US009750

PATIENT
  Age: 89 Year
  Sex: Female

DRUGS (1)
  1. VOLTAREN [Suspect]
     Active Substance: DICLOFENAC SODIUM
     Indication: ARTHRITIS
     Dosage: 4 G, TID PER KNEE
     Route: 061
     Dates: end: 20140620

REACTIONS (3)
  - Eye pruritus [Recovering/Resolving]
  - Underdose [Unknown]
  - Dermatitis [Recovering/Resolving]
